FAERS Safety Report 20526477 (Version 1)
Quarter: 2022Q1

REPORT INFORMATION
  Report Type: Spontaneous
  Country: US (occurrence: None)
  Receive Date: 20220225
  Receipt Date: 20220225
  Transmission Date: 20220423
  Serious: Yes (Other)
  Sender: FDA-Public Use
  Company Number: None

PATIENT
  Age: 72 Year
  Sex: Female
  Weight: 69.75 kg

DRUGS (2)
  1. LEVOFLOXACIN [Suspect]
     Active Substance: LEVOFLOXACIN
     Indication: Kidney infection
     Dosage: FREQUENCY : DAILY;?
     Route: 048
     Dates: start: 20220209, end: 20220215
  2. LEVOFLOXACIN [Suspect]
     Active Substance: LEVOFLOXACIN
     Indication: Urinary tract infection

REACTIONS (4)
  - Nerve injury [None]
  - Paraesthesia [None]
  - Hypoaesthesia [None]
  - Illness [None]

NARRATIVE: CASE EVENT DATE: 20220214
